FAERS Safety Report 7422164-8 (Version None)
Quarter: 2011Q2

REPORT INFORMATION
  Report Type: 
  Country: None (occurrence: None)
  Receive Date: 20110418
  Receipt Date: 20110224
  Transmission Date: 20111010
  Serious: Yes (Other)
  Sender: FDA-Public Use
  Company Number: US-BAYER-201041429NA

PATIENT
  Age: 36 Year
  Sex: Female

DRUGS (17)
  1. LORAZEPAM [Concomitant]
     Dosage: 0.5 MG, UNK
     Route: 048
  2. OMEPRAZOLE [Concomitant]
     Dosage: 20 MG, UNK
     Route: 048
  3. AMOXICILLIN AND CLAVULANATE POTASSIUM [Concomitant]
     Route: 048
  4. SIMVASTATIN [Concomitant]
     Dosage: 20 MG, UNK
     Route: 048
  5. FLUCONAZOLE [Concomitant]
     Dosage: 150 MG, UNK
     Route: 048
  6. OCELLA [Suspect]
     Indication: CONTRACEPTION
     Dosage: UNK UNK, QD
     Dates: start: 20080707, end: 20081103
  7. TRIAMCINOLON 1% [Concomitant]
  8. LOVASTATIN [Concomitant]
     Dosage: 40 MG, UNK
     Route: 048
  9. LAMOTRIGINE [Concomitant]
     Dosage: 25 MG, UNK
     Route: 048
  10. LEVOTHYROXINE SODIUM [Concomitant]
     Dosage: 25 UNK, UNK
     Route: 048
  11. YASMIN [Suspect]
     Indication: ACNE
     Dosage: UNK UNK, QD
     Dates: start: 20080103, end: 20080610
  12. OCELLA [Suspect]
     Indication: ACNE
     Dosage: UNK
     Dates: start: 20090423, end: 20091001
  13. PAROXETINE [Concomitant]
     Dosage: 20 MG, UNK
     Route: 048
  14. SERTRALINE [Concomitant]
     Dosage: 50 MG, UNK
     Route: 048
  15. VANDAZOLE VAGINAL [Concomitant]
     Dosage: 0.75 UNK, UNK
  16. YASMIN [Suspect]
     Indication: CONTRACEPTION
  17. PROPRANOLOL [Concomitant]
     Dosage: 40 MG, UNK
     Route: 048

REACTIONS (4)
  - HEPATIC STEATOSIS [None]
  - BILIARY DYSKINESIA [None]
  - CHOLECYSTECTOMY [None]
  - CHOLESTEROSIS [None]
